FAERS Safety Report 5114111-9 (Version None)
Quarter: 2006Q3

REPORT INFORMATION
  Report Type: 
  Country: None (occurrence: None)
  Receive Date: 20060925
  Receipt Date: 20060918
  Transmission Date: 20061208
  Serious: Yes (Hospitalization)
  Sender: FDA-Public Use
  Company Number: FI-GLAXOSMITHKLINE-B0439185A

PATIENT
  Age: 36 Year
  Sex: Male

DRUGS (16)
  1. COMBIVIR [Suspect]
     Indication: HIV INFECTION
     Dosage: 2CAP PER DAY
     Route: 048
  2. VIREAD [Suspect]
     Indication: HIV INFECTION
     Dosage: 1CAP PER DAY
     Route: 048
     Dates: start: 20050802
  3. TMC114 [Suspect]
     Indication: HIV INFECTION
     Dosage: 600MG TWICE PER DAY
     Route: 048
     Dates: start: 20060725
  4. TMC125 [Suspect]
     Indication: HIV INFECTION
     Dosage: 200MG TWICE PER DAY
     Route: 048
     Dates: start: 20060725
  5. FUZEON [Suspect]
     Indication: HIV INFECTION
     Dosage: 90MG TWICE PER DAY
     Route: 058
     Dates: start: 20060725
  6. NORVIR [Suspect]
     Indication: HIV INFECTION
     Dosage: 100MG TWICE PER DAY
     Route: 048
     Dates: start: 20060725
  7. FOSCAVIR [Suspect]
     Indication: HIV INFECTION
     Route: 042
     Dates: start: 20060725, end: 20060808
  8. CALCICHEW [Concomitant]
     Dosage: 1000MG TWICE PER DAY
     Route: 048
     Dates: start: 20060725, end: 20060808
  9. EMGESAN [Concomitant]
     Route: 048
     Dates: start: 20060725, end: 20060808
  10. NEUPOGEN [Concomitant]
     Indication: NEUTROPENIA
     Dosage: 300MCG WEEKLY
     Route: 058
  11. COTRIM [Concomitant]
     Route: 048
  12. DIFLUCAN [Concomitant]
     Indication: STOMATITIS
     Dosage: 150MG PER DAY
     Route: 048
  13. OMEPRAZOLE [Concomitant]
     Dosage: 40MG PER DAY
     Route: 048
  14. EMCONCOR [Concomitant]
     Indication: CHEST PAIN
     Route: 048
     Dates: start: 20060808
  15. KLEXANE [Concomitant]
     Indication: CHEST PAIN
     Route: 058
     Dates: start: 20060808, end: 20060809
  16. ASPIRIN [Concomitant]
     Indication: CHEST PAIN
     Route: 048
     Dates: start: 20060808, end: 20060809

REACTIONS (1)
  - CHEST PAIN [None]
